FAERS Safety Report 4910107-8 (Version None)
Quarter: 2006Q1

REPORT INFORMATION
  Report Type: 
  Country: None (occurrence: None)
  Receive Date: 20060209
  Receipt Date: 20060131
  Transmission Date: 20060701
  Serious: Yes (Death, Hospitalization, Other)
  Sender: FDA-Public Use
  Company Number: 163-20785-06010168

PATIENT
  Age: 69 Year
  Sex: Male

DRUGS (1)
  1. THALOMID [Suspect]
     Indication: MULTIPLE MYELOMA
     Dosage: 100 MG DAILY ORAL
     Route: 048
     Dates: start: 20050209, end: 20050706

REACTIONS (8)
  - CONFUSIONAL STATE [None]
  - DIABETES MELLITUS INADEQUATE CONTROL [None]
  - DISEASE PROGRESSION [None]
  - HYPERCALCAEMIA [None]
  - MALIGNANT NEOPLASM PROGRESSION [None]
  - MULTIPLE MYELOMA [None]
  - RENAL FAILURE [None]
  - SEPTIC SHOCK [None]
